FAERS Safety Report 6470483-4 (Version None)
Quarter: 2009Q4

REPORT INFORMATION
  Report Type: 
  Country: None (occurrence: None)
  Receive Date: 20091201
  Receipt Date: 20091117
  Transmission Date: 20100525
  Serious: Yes (Other)
  Sender: FDA-Public Use
  Company Number: SPV1-2009-02392

PATIENT
  Sex: Male

DRUGS (1)
  1. FOSRENOL [Suspect]

REACTIONS (2)
  - POST PROCEDURAL COMPLICATION [None]
  - SUBILEUS [None]
